FAERS Safety Report 4840084-X (Version None)
Quarter: 2005Q4

REPORT INFORMATION
  Report Type: 
  Country: None (occurrence: None)
  Receive Date: 20051125
  Receipt Date: 20051114
  Transmission Date: 20060501
  Serious: Yes (Other)
  Sender: FDA-Public Use
  Company Number: 2005155922

PATIENT
  Age: 14 Year
  Sex: Female
  Weight: 150 kg

DRUGS (1)
  1. FRESHBURST LISTERINE ANTISEPTIC (MENTHOL, METHYL SALICYLATE, EUCALYPTO [Suspect]
     Indication: INTENTIONAL OVERDOSE
     Dosage: 1/2 OF A LITER ONCE, ORAL
     Route: 048
     Dates: start: 20051114, end: 20051114

REACTIONS (2)
  - AGGRESSION [None]
  - INTENTIONAL OVERDOSE [None]
